FAERS Safety Report 19866189 (Version 4)
Quarter: 2025Q3

REPORT INFORMATION
  Report Type: Spontaneous
  Country: EU (occurrence: EU)
  Receive Date: 20210921
  Receipt Date: 20250702
  Transmission Date: 20251021
  Serious: Yes (Other)
  Sender: MYLAN
  Company Number: EU-ROCHE-2817812

PATIENT
  Age: 56 Year
  Sex: Male

DRUGS (40)
  1. DEXAMETHASONE [Suspect]
     Active Substance: DEXAMETHASONE
     Indication: Waldenstrom^s macroglobulinaemia
     Dates: start: 20110701, end: 20120322
  2. DEXAMETHASONE [Suspect]
     Active Substance: DEXAMETHASONE
     Route: 065
     Dates: start: 20110701, end: 20120322
  3. DEXAMETHASONE [Suspect]
     Active Substance: DEXAMETHASONE
     Route: 065
     Dates: start: 20110701, end: 20120322
  4. DEXAMETHASONE [Suspect]
     Active Substance: DEXAMETHASONE
     Dates: start: 20110701, end: 20120322
  5. BENDAMUSTINE [Suspect]
     Active Substance: BENDAMUSTINE
     Indication: Waldenstrom^s macroglobulinaemia
     Dates: start: 20120625, end: 20120918
  6. BENDAMUSTINE [Suspect]
     Active Substance: BENDAMUSTINE
     Route: 042
     Dates: start: 20120625, end: 20120918
  7. BENDAMUSTINE [Suspect]
     Active Substance: BENDAMUSTINE
     Route: 042
     Dates: start: 20120625, end: 20120918
  8. BENDAMUSTINE [Suspect]
     Active Substance: BENDAMUSTINE
     Dates: start: 20120625, end: 20120918
  9. VELCADE [Suspect]
     Active Substance: BORTEZOMIB
     Indication: Waldenstrom^s macroglobulinaemia
     Dates: start: 20110701, end: 20120322
  10. VELCADE [Suspect]
     Active Substance: BORTEZOMIB
     Route: 065
     Dates: start: 20110701, end: 20120322
  11. VELCADE [Suspect]
     Active Substance: BORTEZOMIB
     Route: 065
     Dates: start: 20110701, end: 20120322
  12. VELCADE [Suspect]
     Active Substance: BORTEZOMIB
     Dates: start: 20110701, end: 20120322
  13. REVLIMID [Suspect]
     Active Substance: LENALIDOMIDE
     Indication: Waldenstrom^s macroglobulinaemia
     Dates: start: 20110701, end: 20120322
  14. REVLIMID [Suspect]
     Active Substance: LENALIDOMIDE
     Route: 048
     Dates: start: 20110701, end: 20120322
  15. REVLIMID [Suspect]
     Active Substance: LENALIDOMIDE
     Route: 048
     Dates: start: 20110701, end: 20120322
  16. REVLIMID [Suspect]
     Active Substance: LENALIDOMIDE
     Dates: start: 20110701, end: 20120322
  17. CYCLOPHOSPHAMIDE [Suspect]
     Active Substance: CYCLOPHOSPHAMIDE
     Indication: Waldenstrom^s macroglobulinaemia
     Dates: start: 20110307, end: 20110504
  18. CYCLOPHOSPHAMIDE [Suspect]
     Active Substance: CYCLOPHOSPHAMIDE
     Route: 065
     Dates: start: 20110307, end: 20110504
  19. CYCLOPHOSPHAMIDE [Suspect]
     Active Substance: CYCLOPHOSPHAMIDE
     Route: 065
     Dates: start: 20110307, end: 20110504
  20. CYCLOPHOSPHAMIDE [Suspect]
     Active Substance: CYCLOPHOSPHAMIDE
     Dates: start: 20110307, end: 20110504
  21. FLUDARABINE [Suspect]
     Active Substance: FLUDARABINE PHOSPHATE
     Indication: Waldenstrom^s macroglobulinaemia
     Dates: start: 20110207, end: 20110504
  22. FLUDARABINE [Suspect]
     Active Substance: FLUDARABINE PHOSPHATE
     Route: 065
     Dates: start: 20110207, end: 20110504
  23. FLUDARABINE [Suspect]
     Active Substance: FLUDARABINE PHOSPHATE
     Route: 065
     Dates: start: 20110207, end: 20110504
  24. FLUDARABINE [Suspect]
     Active Substance: FLUDARABINE PHOSPHATE
     Dates: start: 20110207, end: 20110504
  25. RITUXIMAB [Suspect]
     Active Substance: RITUXIMAB
     Indication: Glomerulonephritis membranous
     Route: 065
     Dates: start: 20120625, end: 20120918
  26. RITUXIMAB [Suspect]
     Active Substance: RITUXIMAB
     Indication: Acquired haemophilia
     Dates: start: 20120625, end: 20120918
  27. RITUXIMAB [Suspect]
     Active Substance: RITUXIMAB
     Indication: Waldenstrom^s macroglobulinaemia
     Dates: start: 20120625, end: 20120918
  28. RITUXIMAB [Suspect]
     Active Substance: RITUXIMAB
     Route: 065
     Dates: start: 20120625, end: 20120918
  29. RITUXIMAB [Suspect]
     Active Substance: RITUXIMAB
     Route: 065
     Dates: start: 20110307, end: 20210504
  30. RITUXIMAB [Suspect]
     Active Substance: RITUXIMAB
     Dates: start: 20110307, end: 20210504
  31. RITUXIMAB [Suspect]
     Active Substance: RITUXIMAB
     Dates: start: 20110307, end: 20210504
  32. RITUXIMAB [Suspect]
     Active Substance: RITUXIMAB
     Route: 065
     Dates: start: 20110307, end: 20210504
  33. RITUXIMAB [Suspect]
     Active Substance: RITUXIMAB
     Dates: start: 201712, end: 201712
  34. RITUXIMAB [Suspect]
     Active Substance: RITUXIMAB
     Dates: start: 201712, end: 201712
  35. RITUXIMAB [Suspect]
     Active Substance: RITUXIMAB
     Route: 065
     Dates: start: 201712, end: 201712
  36. RITUXIMAB [Suspect]
     Active Substance: RITUXIMAB
     Route: 065
     Dates: start: 201712, end: 201712
  37. RITUXIMAB [Suspect]
     Active Substance: RITUXIMAB
     Dates: start: 20210309, end: 20210309
  38. RITUXIMAB [Suspect]
     Active Substance: RITUXIMAB
     Dates: start: 20210309, end: 20210309
  39. RITUXIMAB [Suspect]
     Active Substance: RITUXIMAB
     Route: 065
     Dates: start: 20210309, end: 20210309
  40. RITUXIMAB [Suspect]
     Active Substance: RITUXIMAB
     Route: 065
     Dates: start: 20210309, end: 20210309

REACTIONS (7)
  - Renal tubular necrosis [Recovered/Resolved]
  - Pneumonia aspiration [Unknown]
  - Primary amyloidosis [Unknown]
  - Generalised oedema [Unknown]
  - Sepsis [Unknown]
  - Fat tissue increased [Unknown]
  - Off label use [Unknown]

NARRATIVE: CASE EVENT DATE: 20121026
